FAERS Safety Report 20778991 (Version 1)
Quarter: 2022Q2

REPORT INFORMATION
  Report Type: Spontaneous
  Country: CA (occurrence: CA)
  Receive Date: 20220503
  Receipt Date: 20220503
  Transmission Date: 20220721
  Serious: Yes (Death, Other)
  Sender: FDA-Public Use
  Company Number: CA-PFIZER INC-202200636215

PATIENT
  Age: 74 Year
  Sex: Male

DRUGS (10)
  1. FILGRASTIM [Suspect]
     Active Substance: FILGRASTIM
     Indication: Pure white cell aplasia
     Dosage: 300 UG
     Route: 058
  2. FILGRASTIM [Suspect]
     Active Substance: FILGRASTIM
     Indication: Febrile neutropenia
     Dosage: SECOND COURSE
  3. HUMAN IMMUNOGLOBULIN G [Suspect]
     Active Substance: HUMAN IMMUNOGLOBULIN G
     Indication: Pure white cell aplasia
     Dosage: 1 G/KG
     Route: 042
  4. HUMAN IMMUNOGLOBULIN G [Suspect]
     Active Substance: HUMAN IMMUNOGLOBULIN G
     Indication: Febrile neutropenia
  5. DAPSONE [Suspect]
     Active Substance: DAPSONE
     Indication: Pure white cell aplasia
     Dosage: 100 MG, 1X/DAY
  6. DAPSONE [Suspect]
     Active Substance: DAPSONE
     Indication: Cytopenia
  7. DANAZOL [Suspect]
     Active Substance: DANAZOL
     Indication: Pure white cell aplasia
     Dosage: 200 MG, 2X/DAY
  8. DANAZOL [Suspect]
     Active Substance: DANAZOL
     Indication: Cytopenia
  9. CYCLOSPORINE [Suspect]
     Active Substance: CYCLOSPORINE
     Indication: Pure white cell aplasia
     Dosage: 100 MG, 2X/DAY
  10. CYCLOSPORINE [Suspect]
     Active Substance: CYCLOSPORINE
     Indication: Febrile neutropenia
     Dosage: 50 MG, 2X/DAY

REACTIONS (4)
  - Drug ineffective [Fatal]
  - Sepsis [Fatal]
  - Multiple organ dysfunction syndrome [Fatal]
  - Thrombocytopenia [Recovering/Resolving]
